FAERS Safety Report 9133529 (Version 1)
Quarter: 2013Q1

REPORT INFORMATION
  Report Type: Spontaneous
  Country: US (occurrence: US)
  Receive Date: 20130124
  Receipt Date: 20130124
  Transmission Date: 20140127
  Serious: Yes (Other)
  Sender: FDA-Public Use
  Company Number: US-BRACCO-007504

PATIENT
  Sex: Female

DRUGS (2)
  1. MULTIHANCE [Suspect]
     Indication: NUCLEAR MAGNETIC RESONANCE IMAGING BRAIN
     Route: 042
     Dates: start: 20120206, end: 20120206
  2. MULTIHANCE [Suspect]
     Indication: HEADACHE
     Route: 042
     Dates: start: 20120206, end: 20120206

REACTIONS (1)
  - Hypersensitivity [Recovered/Resolved]
